FAERS Safety Report 16947613 (Version 2)
Quarter: 2019Q4

REPORT INFORMATION
  Report Type: Spontaneous
  Country: NL (occurrence: NL)
  Receive Date: 20191022
  Receipt Date: 20191211
  Transmission Date: 20200122
  Serious: Yes (Hospitalization)
  Sender: FDA-Public Use
  Company Number: NL-BAUSCH-BL-2019-057844

PATIENT
  Age: 60 Year
  Sex: Male
  Weight: 80.5 kg

DRUGS (20)
  1. DEXAMETHASONE. [Suspect]
     Active Substance: DEXAMETHASONE
     Indication: PRODUCT USED FOR UNKNOWN INDICATION
     Route: 048
     Dates: start: 20190816
  2. LENALIDOMIDE [Suspect]
     Active Substance: LENALIDOMIDE
     Route: 048
     Dates: start: 20190816
  3. PANTOPRAZOL AUROBINDO [Concomitant]
     Active Substance: PANTOPRAZOLE SODIUM
     Indication: INFECTION PROPHYLAXIS
     Route: 048
  4. FENTANYL. [Concomitant]
     Active Substance: FENTANYL
     Dosage: FREQUENCY : OTHER
     Route: 062
     Dates: start: 20190705, end: 20190814
  5. OXYCODONE [Concomitant]
     Active Substance: OXYCODONE
     Indication: PAIN
     Dosage: FREQUENCY: OTHER
     Route: 048
     Dates: start: 20190703
  6. VELCADE [Suspect]
     Active Substance: BORTEZOMIB
     Indication: PLASMA CELL MYELOMA
     Dosage: CYCLE 3 DAY 1
     Route: 058
     Dates: start: 20190913
  7. VELCADE [Suspect]
     Active Substance: BORTEZOMIB
     Dosage: CYCLE 3 DAY 4
     Route: 058
     Dates: start: 20190917
  8. VELCADE [Suspect]
     Active Substance: BORTEZOMIB
     Dosage: MED KIT NO. BE19800200
     Route: 058
     Dates: start: 20190702, end: 20190712
  9. LENALIDOMIDE [Suspect]
     Active Substance: LENALIDOMIDE
     Dosage: MED KIT NO. A2578AB
     Route: 048
     Dates: start: 20190702, end: 20190722
  10. DEXAMETHASONE. [Suspect]
     Active Substance: DEXAMETHASONE
     Indication: PLASMA CELL MYELOMA
     Route: 048
     Dates: start: 20190702, end: 20190713
  11. MOVICOLON [Concomitant]
     Active Substance: POLYETHYLENE GLYCOL 3350\POTASSIUM CHLORIDE\SODIUM BICARBONATE\SODIUM CHLORIDE
     Indication: CONSTIPATION
     Dosage: 1 SACHET
     Route: 048
     Dates: start: 20190607
  12. LENALIDOMIDE [Suspect]
     Active Substance: LENALIDOMIDE
     Indication: PLASMA CELL MYELOMA
     Dosage: CYCLE 2 DAY 1
     Route: 048
     Dates: start: 20190816, end: 20190905
  13. DEXAMETHASONE. [Suspect]
     Active Substance: DEXAMETHASONE
     Route: 048
     Dates: start: 20190709, end: 20190709
  14. PREDNISONE. [Concomitant]
     Active Substance: PREDNISONE
     Indication: RASH
     Route: 048
     Dates: start: 20190726, end: 20190821
  15. VELCADE [Suspect]
     Active Substance: BORTEZOMIB
     Route: 058
     Dates: start: 20190715, end: 20190715
  16. VELCADE [Suspect]
     Active Substance: BORTEZOMIB
     Dosage: CYCLE 2 DAY 1
     Route: 058
     Dates: start: 20190816
  17. LENALIDOMIDE [Suspect]
     Active Substance: LENALIDOMIDE
     Dosage: CYCLE 3 DAY 1
     Route: 048
     Dates: start: 20190913
  18. METOCLOPRAMIDE. [Concomitant]
     Active Substance: METOCLOPRAMIDE
     Indication: NAUSEA
     Dosage: AS REQUIRED
     Route: 048
     Dates: start: 20190703
  19. DEXAMETHASONE. [Suspect]
     Active Substance: DEXAMETHASONE
     Route: 048
     Dates: start: 20190913
  20. FENTANYL. [Concomitant]
     Active Substance: FENTANYL
     Indication: PAIN
     Route: 062
     Dates: start: 20190814, end: 20190912

REACTIONS (1)
  - Pyrexia [Recovered/Resolved]

NARRATIVE: CASE EVENT DATE: 20190805
